FAERS Safety Report 26148202 (Version 1)
Quarter: 2025Q4

REPORT INFORMATION
  Report Type: Spontaneous
  Country: US (occurrence: US)
  Receive Date: 20251212
  Receipt Date: 20251212
  Transmission Date: 20260118
  Serious: Yes (Other)
  Sender: REGENERON
  Company Number: US-REGENERON PHARMACEUTICALS, INC.-2025-194123

PATIENT
  Sex: Male

DRUGS (2)
  1. PRALUENT [Suspect]
     Active Substance: ALIROCUMAB
     Indication: Blood cholesterol increased
     Dosage: 75 MG, ONCE MONTHLY (STRENGTH: 75MG/ML)
     Route: 058
     Dates: start: 202411, end: 202508
  2. PRALUENT [Suspect]
     Active Substance: ALIROCUMAB
     Indication: Low density lipoprotein increased
     Dosage: 75 MG, Q2W (EVERY 2 WEEKS) (STRENGTH: 75MG/ML)
     Route: 058
     Dates: start: 202508, end: 20251202

REACTIONS (7)
  - Atrial fibrillation [Not Recovered/Not Resolved]
  - Sinus bradycardia [Unknown]
  - Hernia [Unknown]
  - Pain in extremity [Unknown]
  - Fatigue [Unknown]
  - Muscle spasms [Unknown]
  - Off label use [Recovered/Resolved]

NARRATIVE: CASE EVENT DATE: 20241101
